FAERS Safety Report 20342890 (Version 2)
Quarter: 2022Q1

REPORT INFORMATION
  Report Type: Spontaneous
  Country: US (occurrence: US)
  Receive Date: 20220117
  Receipt Date: 20220131
  Transmission Date: 20220423
  Serious: Yes (Death)
  Sender: FDA-Public Use
  Company Number: US-TEVA-2022-US-1999071

PATIENT
  Age: 16 Year
  Sex: Male

DRUGS (12)
  1. BENDAMUSTINE [Suspect]
     Active Substance: BENDAMUSTINE
     Indication: Hodgkin^s disease
     Route: 065
  2. DACARBAZINE [Suspect]
     Active Substance: DACARBAZINE
     Indication: Hodgkin^s disease
     Dosage: AS A PART OF COPD REGIMEN
     Route: 065
  3. ETOPOSIDE [Suspect]
     Active Substance: ETOPOSIDE
     Indication: Hodgkin^s disease
     Dosage: AS A PART OF OEPA REGIMEN
     Route: 065
  4. GEMCITABINE [Suspect]
     Active Substance: GEMCITABINE
     Indication: Hodgkin^s disease
     Route: 065
  5. PREDNISONE [Suspect]
     Active Substance: PREDNISONE
     Indication: Hodgkin^s disease
     Dosage: AS A PART OF OEPA REGIMEN
     Route: 065
  6. PREDNISONE [Suspect]
     Active Substance: PREDNISONE
     Indication: Hodgkin^s disease
     Dosage: AS A PART OF COPD REGIMEN
     Route: 065
  7. VINCRISTINE [Suspect]
     Active Substance: VINCRISTINE
     Indication: Hodgkin^s disease
     Dosage: AS A PART OF OEPA REGIMEN
     Route: 065
  8. VINCRISTINE [Suspect]
     Active Substance: VINCRISTINE
     Indication: Hodgkin^s disease
     Dosage: AS A PART OF COPD REGIMEN
     Route: 065
  9. VINORELBINE [Suspect]
     Active Substance: VINORELBINE TARTRATE
     Indication: Hodgkin^s disease
     Route: 065
  10. ADRIAMYCIN [Suspect]
     Active Substance: DOXORUBICIN HYDROCHLORIDE
     Indication: Hodgkin^s disease
     Dosage: AS A PART OF OEPA REGIMEN
     Route: 065
  11. CYCLOPHOSPHAMIDE [Suspect]
     Active Substance: CYCLOPHOSPHAMIDE
     Indication: Hodgkin^s disease
     Dosage: AS A PART OF COPD REGIMEN
     Route: 065
  12. BRENTUXIMAB [Suspect]
     Active Substance: BRENTUXIMAB
     Indication: Hodgkin^s disease
     Route: 065

REACTIONS (1)
  - Treatment failure [Fatal]
